FAERS Safety Report 5052300-2 (Version None)
Quarter: 2006Q3

REPORT INFORMATION
  Report Type: 
  Country: None (occurrence: None)
  Receive Date: 20060717
  Receipt Date: 20060609
  Transmission Date: 20061208
  Serious: Yes (Death, Other)
  Sender: FDA-Public Use
  Company Number: US-ABBOTT-06P-163-0335667-00

PATIENT
  Age: 56 Year
  Sex: Male

DRUGS (4)
  1. RITONAVIR SOFT GELATIN CAPSULES [Suspect]
     Indication: HIV INFECTION
     Route: 065
     Dates: start: 20050501, end: 20050701
  2. APTIVUS [Suspect]
     Indication: HIV INFECTION
     Route: 065
     Dates: start: 20050501, end: 20050701
  3. FUZEON [Concomitant]
     Indication: HIV INFECTION
     Route: 065
     Dates: start: 20050501, end: 20050701
  4. LAMIVUDINE + ZIDOVUDINE [Concomitant]
     Indication: HIV INFECTION
     Route: 065
     Dates: start: 20050501, end: 20050701

REACTIONS (6)
  - ACQUIRED IMMUNODEFICIENCY SYNDROME [None]
  - BLINDNESS [None]
  - DEAFNESS [None]
  - DRUG INEFFECTIVE [None]
  - GENERAL PHYSICAL HEALTH DETERIORATION [None]
  - MENINGITIS CRYPTOCOCCAL [None]
